FAERS Safety Report 14858225 (Version 4)
Quarter: 2020Q1

REPORT INFORMATION
  Report Type: Spontaneous
  Country: US (occurrence: US)
  Receive Date: 20180508
  Receipt Date: 20200213
  Transmission Date: 20200409
  Serious: Yes (Hospitalization, Disabling)
  Sender: FDA-Public Use
  Company Number: US-BIOGEN-2005BI003281

PATIENT
  Age: 44 Year
  Sex: Male
  Weight: 83.99 kg

DRUGS (17)
  1. AVONEX [Suspect]
     Active Substance: INTERFERON BETA-1A
  2. AVONEX [Suspect]
     Active Substance: INTERFERON BETA-1A
  3. ENALAPRIL [Concomitant]
     Active Substance: ENALAPRIL
     Indication: PRODUCT USED FOR UNKNOWN INDICATION
     Route: 050
  4. AVONEX [Suspect]
     Active Substance: INTERFERON BETA-1A
  5. AVONEX [Suspect]
     Active Substance: INTERFERON BETA-1A
  6. SODIUM CHLORIDE. [Concomitant]
     Active Substance: SODIUM CHLORIDE
     Indication: PRODUCT USED FOR UNKNOWN INDICATION
     Route: 050
  7. URECHOLINE [Concomitant]
     Active Substance: BETHANECHOL CHLORIDE
     Indication: PRODUCT USED FOR UNKNOWN INDICATION
     Route: 050
  8. PROPRANOLOL [Concomitant]
     Active Substance: PROPRANOLOL HYDROCHLORIDE
     Indication: PRODUCT USED FOR UNKNOWN INDICATION
     Route: 050
  9. PERCOCET [Concomitant]
     Active Substance: ACETAMINOPHEN\OXYCODONE HYDROCHLORIDE
     Indication: PRODUCT USED FOR UNKNOWN INDICATION
     Route: 050
  10. AVONEX [Suspect]
     Active Substance: INTERFERON BETA-1A
     Route: 050
     Dates: start: 19990101
  11. NEUTRA-PHOS [Concomitant]
     Active Substance: POTASSIUM PHOSPHATE, DIBASIC\POTASSIUM PHOSPHATE, MONOBASIC\SODIUM PHOSPHATE, DIBASIC\SODIUM PHOSPHATE, MONOBASIC
     Indication: PRODUCT USED FOR UNKNOWN INDICATION
     Route: 050
  12. AVONEX [Suspect]
     Active Substance: INTERFERON BETA-1A
  13. ERYTHROMYCIN. [Concomitant]
     Active Substance: ERYTHROMYCIN
     Indication: PRODUCT USED FOR UNKNOWN INDICATION
     Route: 050
  14. DILANTIN [Concomitant]
     Active Substance: PHENYTOIN
     Indication: PRODUCT USED FOR UNKNOWN INDICATION
     Route: 050
  15. AVONEX [Suspect]
     Active Substance: INTERFERON BETA-1A
     Indication: MULTIPLE SCLEROSIS
     Route: 050
     Dates: start: 1999, end: 2003
  16. AVONEX [Suspect]
     Active Substance: INTERFERON BETA-1A
     Route: 050
     Dates: start: 2003
  17. AVONEX [Suspect]
     Active Substance: INTERFERON BETA-1A

REACTIONS (15)
  - Cerebral haemorrhage [Not Recovered/Not Resolved]
  - Pain [Not Recovered/Not Resolved]
  - Hypertension [Recovered/Resolved]
  - Cognitive disorder [Not Recovered/Not Resolved]
  - Skull fracture [Not Recovered/Not Resolved]
  - Subdural haematoma [Not Recovered/Not Resolved]
  - Brain contusion [Not Recovered/Not Resolved]
  - Blood potassium abnormal [Not Recovered/Not Resolved]
  - Sleep disorder [Not Recovered/Not Resolved]
  - Facial bones fracture [Not Recovered/Not Resolved]
  - Road traffic accident [Recovered/Resolved]
  - Inappropriate antidiuretic hormone secretion [Unknown]
  - Eye disorder [Not Recovered/Not Resolved]
  - Skin laceration [Not Recovered/Not Resolved]
  - Urinary retention [Not Recovered/Not Resolved]

NARRATIVE: CASE EVENT DATE: 200501
